FAERS Safety Report 4501077-5 (Version None)
Quarter: 2004Q4

REPORT INFORMATION
  Report Type: 
  Country: None (occurrence: None)
  Receive Date: 20041109
  Receipt Date: 20041020
  Transmission Date: 20050328
  Serious: Yes (Death, Hospitalization, Other)
  Sender: FDA-Public Use
  Company Number: USA040771950

PATIENT
  Age: 72 Year
  Sex: Female

DRUGS (4)
  1. FORTEO [Suspect]
     Indication: OSTEOPOROSIS
     Dates: start: 20030101
  2. PREDNISONE [Concomitant]
  3. COUMADIN [Concomitant]
  4. VIOXX [Concomitant]

REACTIONS (8)
  - CALCINOSIS [None]
  - CARDIAC FAILURE CONGESTIVE [None]
  - CONDITION AGGRAVATED [None]
  - LEG AMPUTATION [None]
  - LYMPHOMA [None]
  - MUSCLE CRAMP [None]
  - MUSCLE SPASMS [None]
  - ULCER HAEMORRHAGE [None]
